FAERS Safety Report 16933956 (Version 1)
Quarter: 2019Q4

REPORT INFORMATION
  Report Type: Report from Study
  Country: US (occurrence: US)
  Receive Date: 20191018
  Receipt Date: 20191018
  Transmission Date: 20200122
  Serious: Yes (Other)
  Sender: FDA-Public Use
  Company Number: US-ROCHE-2437512

PATIENT
  Sex: Male

DRUGS (1)
  1. OCREVUS [Suspect]
     Active Substance: OCRELIZUMAB
     Indication: RELAPSING MULTIPLE SCLEROSIS
     Dosage: SUBSEQUENT DOSE: 11/JAN/2019 AND 28/JUN/2019
     Route: 065
     Dates: start: 20181228

REACTIONS (2)
  - Candida infection [Not Recovered/Not Resolved]
  - Urinary tract infection [Unknown]
